FAERS Safety Report 19102984 (Version 1)
Quarter: 2021Q2

REPORT INFORMATION
  Report Type: Spontaneous
  Country: US (occurrence: US)
  Receive Date: 20210407
  Receipt Date: 20210407
  Transmission Date: 20210717
  Serious: Yes (Hospitalization)
  Sender: FDA-Public Use
  Company Number: None

PATIENT
  Age: 45 Year
  Sex: Female
  Weight: 211.95 kg

DRUGS (2)
  1. BAMLANIVIMAB. [Suspect]
     Active Substance: BAMLANIVIMAB
     Indication: DRUG THERAPY
     Dosage: ?          OTHER FREQUENCY:ONCE;?
     Route: 042
     Dates: start: 20210406, end: 20210406
  2. ETESEVIMAB. [Suspect]
     Active Substance: ETESEVIMAB
     Indication: DRUG THERAPY
     Dates: start: 20210406, end: 20210406

REACTIONS (7)
  - Infusion related reaction [None]
  - Cold sweat [None]
  - Flushing [None]
  - Hyperhidrosis [None]
  - Oxygen saturation decreased [None]
  - Lip discolouration [None]
  - Feeling hot [None]

NARRATIVE: CASE EVENT DATE: 20210406
